FAERS Safety Report 8351721-X (Version None)
Quarter: 2012Q2

REPORT INFORMATION
  Report Type: 
  Country: None (occurrence: None)
  Receive Date: 20120511
  Receipt Date: 20120502
  Transmission Date: 20120825
  Serious: No
  Sender: FDA-Public Use
  Company Number: US-BIOGENIDEC-2012BI015734

PATIENT
  Sex: Female

DRUGS (1)
  1. TYSABRI [Suspect]
     Indication: MULTIPLE SCLEROSIS
     Route: 042
     Dates: start: 20120110

REACTIONS (5)
  - HEPATIC ENZYME INCREASED [None]
  - INFUSION SITE PAIN [None]
  - MIGRAINE [None]
  - UNDERDOSE [None]
  - ABDOMINAL PAIN UPPER [None]
